FAERS Safety Report 5129511-0 (Version None)
Quarter: 2006Q4

REPORT INFORMATION
  Report Type: 
  Country: None (occurrence: None)
  Receive Date: 20061012
  Receipt Date: 20060929
  Transmission Date: 20070319
  Serious: Yes (Death)
  Sender: FDA-Public Use
  Company Number: C-06-0056

PATIENT
  Sex: Male

DRUGS (1)
  1. LINDANE [Suspect]
     Dosage: TOPICAL
     Route: 061
     Dates: start: 20060414

REACTIONS (3)
  - BRAIN STEM SYNDROME [None]
  - CONVULSION [None]
  - WRONG TECHNIQUE IN DRUG USAGE PROCESS [None]
